FAERS Safety Report 7763234-4 (Version None)
Quarter: 2011Q3

REPORT INFORMATION
  Report Type: 
  Country: None (occurrence: None)
  Receive Date: 20110920
  Receipt Date: 20110915
  Transmission Date: 20111222
  Serious: Yes (Life-Threatening)
  Sender: FDA-Public Use
  Company Number: PHHY2011JP78410

PATIENT
  Age: 75 Year
  Sex: Male
  Weight: 35 kg

DRUGS (10)
  1. SENNOSIDE [Concomitant]
     Route: 048
  2. CARVEDILOL [Concomitant]
     Route: 048
  3. PANTOSIN [Concomitant]
     Route: 065
  4. AMOBAN [Concomitant]
     Route: 048
  5. RISUMIC [Concomitant]
     Route: 048
  6. DORNER [Concomitant]
     Route: 048
  7. TEGRETOL [Suspect]
     Indication: PAIN
     Dosage: 100 MG, BID
     Route: 048
     Dates: start: 20110822
  8. LANSOPRAZOLE [Concomitant]
     Route: 065
  9. OLOPATADINE HCL [Concomitant]
     Route: 048
  10. TICLOPIDINE HCL [Concomitant]
     Route: 048

REACTIONS (1)
  - BLOOD POTASSIUM INCREASED [None]
